FAERS Safety Report 5026644-4 (Version None)
Quarter: 2006Q2

REPORT INFORMATION
  Report Type: 
  Country: None (occurrence: None)
  Receive Date: 20060615
  Receipt Date: 20060613
  Transmission Date: 20061013
  Serious: Yes (Hospitalization)
  Sender: FDA-Public Use
  Company Number: US-GLAXOSMITHKLINE-A0608841A

PATIENT
  Age: 31 Year
  Sex: Female

DRUGS (11)
  1. IMITREX [Suspect]
     Indication: MIGRAINE
     Dosage: 6MG AS REQUIRED
     Route: 058
  2. ZOFRAN [Suspect]
     Indication: MIGRAINE
     Dosage: 4MG AS REQUIRED
     Route: 048
  3. ZYRTEC-D 12 HOUR [Concomitant]
  4. DICYCLOMINE [Concomitant]
  5. TOPAMAX [Concomitant]
  6. NEXIUM [Concomitant]
  7. MORPHINE SULFATE [Concomitant]
  8. DIAZEPAM [Concomitant]
  9. BACLOFEN [Concomitant]
  10. BENADRYL [Concomitant]
  11. IRON SUPPLEMENT [Concomitant]

REACTIONS (7)
  - DEHYDRATION [None]
  - DRUG INEFFECTIVE [None]
  - DRUG SCREEN POSITIVE [None]
  - HEART RATE INCREASED [None]
  - HOT FLUSH [None]
  - NAUSEA [None]
  - VOMITING [None]
